FAERS Safety Report 10245235 (Version 6)
Quarter: 2016Q1

REPORT INFORMATION
  Report Type: Report from Study
  Country: US (occurrence: US)
  Receive Date: 20140618
  Receipt Date: 20160104
  Transmission Date: 20160525
  Serious: Yes (Other)
  Sender: FDA-Public Use
  Company Number: US-SA-2014SA077712

PATIENT
  Age: 70 Year
  Sex: Female

DRUGS (2)
  1. REMERON [Concomitant]
     Active Substance: MIRTAZAPINE
     Indication: POOR QUALITY SLEEP
  2. AUBAGIO [Suspect]
     Active Substance: TERIFLUNOMIDE
     Indication: MULTIPLE SCLEROSIS
     Route: 048
     Dates: start: 20131007

REACTIONS (13)
  - Abasia [Recovering/Resolving]
  - Pyrexia [Unknown]
  - Hair texture abnormal [Not Recovered/Not Resolved]
  - Feeling hot [Unknown]
  - Unevaluable event [Not Recovered/Not Resolved]
  - Alopecia [Recovered/Resolved]
  - Tooth disorder [Unknown]
  - Dyspnoea [Not Recovered/Not Resolved]
  - Hypoaesthesia [Not Recovered/Not Resolved]
  - Conjunctivitis viral [Recovering/Resolving]
  - Nuclear magnetic resonance imaging abnormal [Not Recovered/Not Resolved]
  - Burning sensation [Not Recovered/Not Resolved]
  - Multiple sclerosis relapse [Recovering/Resolving]

NARRATIVE: CASE EVENT DATE: 201405
